FAERS Safety Report 13256175 (Version 1)
Quarter: 2017Q1

REPORT INFORMATION
  Report Type: Spontaneous
  Country: US (occurrence: US)
  Receive Date: 20170221
  Receipt Date: 20170221
  Transmission Date: 20170428
  Serious: Yes (Hospitalization)
  Sender: FDA-Public Use
  Company Number: None

PATIENT

DRUGS (3)
  1. METHYLPREDNISOLONE. [Suspect]
     Active Substance: METHYLPREDNISOLONE
  2. CEFTRIAXONE. [Suspect]
     Active Substance: CEFTRIAXONE
  3. FAMOTIDINE. [Suspect]
     Active Substance: FAMOTIDINE

REACTIONS (2)
  - Diarrhoea [None]
  - Clostridium test positive [None]

NARRATIVE: CASE EVENT DATE: 20150224
